FAERS Safety Report 18612655 (Version 1)
Quarter: 2020Q4

REPORT INFORMATION
  Report Type: Report from Study
  Country: CA (occurrence: CA)
  Receive Date: 20201214
  Receipt Date: 20201214
  Transmission Date: 20210114
  Serious: Yes (Other)
  Sender: FDA-Public Use
  Company Number: CA-BAYER-2020-267970

PATIENT
  Age: 64 Year
  Sex: Female

DRUGS (11)
  1. CYCLOPHOSPHAMIDE. [Suspect]
     Active Substance: CYCLOPHOSPHAMIDE
  2. SYMBICORT [Suspect]
     Active Substance: BUDESONIDE\FORMOTEROL FUMARATE DIHYDRATE
  3. NUCALA [Suspect]
     Active Substance: MEPOLIZUMAB
  4. PREDNISONE. [Suspect]
     Active Substance: PREDNISONE
  5. VITAMIN D [VITAMIN D NOS] [Suspect]
     Active Substance: VITAMIN D NOS
  6. SALBUTAMOL SULFATE [Suspect]
     Active Substance: ALBUTEROL SULFATE
  7. SINGULAIR [Suspect]
     Active Substance: MONTELUKAST SODIUM
  8. NAPROXEN. [Suspect]
     Active Substance: NAPROXEN
  9. SINGULAIR [Suspect]
     Active Substance: MONTELUKAST SODIUM
  10. IMURAN [Suspect]
     Active Substance: AZATHIOPRINE
  11. SOLU-MEDROL [Suspect]
     Active Substance: METHYLPREDNISOLONE SODIUM SUCCINATE

REACTIONS (30)
  - Cough [None]
  - Nasal congestion [None]
  - Scab [None]
  - Sputum discoloured [None]
  - Sputum retention [None]
  - Upper-airway cough syndrome [None]
  - Dysgeusia [None]
  - Fatigue [None]
  - Restrictive pulmonary disease [None]
  - Back pain [None]
  - Mononeuropathy multiplex [None]
  - Nasopharyngitis [None]
  - Sleep disorder due to a general medical condition [None]
  - Therapeutic product effect incomplete [None]
  - Vasculitis [None]
  - Blood count abnormal [None]
  - Hypersensitivity vasculitis [None]
  - Loss of personal independence in daily activities [None]
  - Respiratory gas exchange disorder [None]
  - Sinusitis [None]
  - Upper airway obstruction [None]
  - Myocarditis [None]
  - Wheezing [None]
  - Asthma [None]
  - Chest discomfort [None]
  - Dyspnoea [None]
  - Nasal polyps [None]
  - Obstructive airways disorder [None]
  - Parosmia [None]
  - Respiratory symptom [None]
